FAERS Safety Report 19392010 (Version 3)
Quarter: 2021Q3

REPORT INFORMATION
  Report Type: Report from Study
  Country: IL (occurrence: IL)
  Receive Date: 20210608
  Receipt Date: 20210809
  Transmission Date: 20211014
  Serious: Yes (Hospitalization, Other)
  Sender: FDA-Public Use
  Company Number: IL-GILEAD-2021-0529427

PATIENT
  Age: 67 Year
  Sex: Male
  Weight: 69 kg

DRUGS (6)
  1. ATEZOLIZUMAB. [Suspect]
     Active Substance: ATEZOLIZUMAB
     Indication: NON-SMALL CELL LUNG CANCER METASTATIC
     Dosage: 1200 MG 1 IN 3 WK
     Route: 041
     Dates: start: 20201229
  2. LYRICA [Concomitant]
     Active Substance: PREGABALIN
     Indication: MYALGIA
     Dosage: 75 MG, 1 IN 1 AS REQUIRED
     Route: 048
     Dates: start: 202009
  3. SACITUZUMAB GOVITECAN. [Suspect]
     Active Substance: SACITUZUMAB GOVITECAN
     Indication: NON-SMALL CELL LUNG CANCER METASTATIC
     Dosage: 640 MG ON DAY 1 AND 8 OF EACH 21?DAY CYCLE
     Route: 042
     Dates: start: 20201229
  4. SODIUM CHLORIDE;WATER [Concomitant]
     Indication: DYSPNOEA
     Dosage: UNK
     Route: 055
     Dates: start: 202001
  5. CANNABIS [Concomitant]
     Active Substance: CANNABIS SATIVA SUBSP. INDICA TOP
     Indication: PRODUCT USED FOR UNKNOWN INDICATION
     Dosage: 1 PUFF (1 IN 1 AS REQUIRED)
     Route: 048
     Dates: start: 202001
  6. SODIUM CHLORIDE;WATER [Concomitant]
     Indication: COVID-19

REACTIONS (3)
  - Pleural effusion [Not Recovered/Not Resolved]
  - Hypotension [Recovered/Resolved]
  - Atrial fibrillation [Not Recovered/Not Resolved]

NARRATIVE: CASE EVENT DATE: 20210117
